FAERS Safety Report 7868357-7 (Version None)
Quarter: 2011Q4

REPORT INFORMATION
  Report Type: 
  Country: None (occurrence: None)
  Receive Date: 20111028
  Receipt Date: 20111024
  Transmission Date: 20120403
  Serious: Yes (Hospitalization)
  Sender: FDA-Public Use
  Company Number: US-AMGEN-USASP2011034828

PATIENT
  Age: 48 Year
  Sex: Male

DRUGS (2)
  1. ENBREL [Suspect]
     Indication: PSORIATIC ARTHROPATHY
     Dosage: 50 MG, QWK
     Dates: start: 20100101
  2. ENBREL [Suspect]
     Indication: PSORIASIS

REACTIONS (6)
  - CELLULITIS [None]
  - NEPHROLITHIASIS [None]
  - THERAPEUTIC RESPONSE DECREASED [None]
  - SKIN EXFOLIATION [None]
  - HYPOAESTHESIA [None]
  - TENDON DISORDER [None]
